FAERS Safety Report 9832486 (Version 3)
Quarter: 2014Q1

REPORT INFORMATION
  Report Type: Report from Study
  Country: US (occurrence: US)
  Receive Date: 20140121
  Receipt Date: 20140326
  Transmission Date: 20141002
  Serious: Yes (Hospitalization)
  Sender: FDA-Public Use
  Company Number: US-JNJFOC-20140108453

PATIENT
  Age: 10 Year
  Sex: Female
  Weight: 31.3 kg

DRUGS (4)
  1. REMICADE [Suspect]
     Indication: COLITIS ULCERATIVE
     Route: 042
     Dates: start: 20130823
  2. HYDROCORTISONE [Concomitant]
     Route: 065
  3. VYVANSE [Concomitant]
     Route: 065
  4. PRILOSEC [Concomitant]
     Route: 065

REACTIONS (2)
  - Dehydration [Recovered/Resolved with Sequelae]
  - Gastrointestinal stoma complication [Recovered/Resolved with Sequelae]
